FAERS Safety Report 22087713 (Version 2)
Quarter: 2023Q2

REPORT INFORMATION
  Report Type: Spontaneous
  Country: US (occurrence: None)
  Receive Date: 20230313
  Receipt Date: 20230414
  Transmission Date: 20230722
  Serious: Yes (Other)
  Sender: FDA-Public Use
  Company Number: 2023A044235

PATIENT
  Age: 895 Month
  Sex: Female
  Weight: 52.6 kg

DRUGS (1)
  1. BREZTRI [Suspect]
     Active Substance: BUDESONIDE\FORMOTEROL\GLYCOPYRROLATE
     Indication: Chronic obstructive pulmonary disease
     Dosage: 160/9/4.8MCG, 120 INHALATION INHALER, TWO PUFFS TWICE A DAY
     Route: 055
     Dates: start: 202212

REACTIONS (11)
  - Spinal stenosis [Unknown]
  - Cardiac failure congestive [Not Recovered/Not Resolved]
  - Blood pressure abnormal [Unknown]
  - Pulmonary arterial hypertension [Unknown]
  - Dyspnoea [Unknown]
  - Peripheral swelling [Unknown]
  - Productive cough [Unknown]
  - Cough [Unknown]
  - Device use issue [Unknown]
  - Product dose omission issue [Unknown]
  - Wrong technique in device usage process [Unknown]

NARRATIVE: CASE EVENT DATE: 20220901
